FAERS Safety Report 5727751-0 (Version None)
Quarter: 2008Q2

REPORT INFORMATION
  Report Type: 
  Country: None (occurrence: None)
  Receive Date: 20080430
  Receipt Date: 20080415
  Transmission Date: 20081010
  Serious: No
  Sender: FDA-Public Use
  Company Number: 002#2#2008-00208

PATIENT
  Age: 78 Year
  Sex: Male
  Weight: 61.2356 kg

DRUGS (11)
  1. NEUPRO [Suspect]
     Indication: PARKINSON'S DISEASE
     Dosage: 2 MG/24H, 1 IN 1 D, TRANSDERMAL; 4MG/24H, 1 IN 1 D, TRANSDERMAL; 6MG/24H, 1 IN 1 D, TRANSDERMAL
     Route: 062
     Dates: start: 20071101, end: 20071101
  2. NEUPRO [Suspect]
     Indication: PARKINSON'S DISEASE
     Dosage: 2 MG/24H, 1 IN 1 D, TRANSDERMAL; 4MG/24H, 1 IN 1 D, TRANSDERMAL; 6MG/24H, 1 IN 1 D, TRANSDERMAL
     Route: 062
     Dates: start: 20071101, end: 20071101
  3. NEUPRO [Suspect]
     Indication: PARKINSON'S DISEASE
     Dosage: 2 MG/24H, 1 IN 1 D, TRANSDERMAL; 4MG/24H, 1 IN 1 D, TRANSDERMAL; 6MG/24H, 1 IN 1 D, TRANSDERMAL
     Route: 062
     Dates: start: 20071201
  4. AMANTADINE HCL [Concomitant]
  5. PREDNISONE TAB [Concomitant]
  6. FOLGARD [Concomitant]
  7. PROSCAR [Concomitant]
  8. RESTORIL [Concomitant]
  9. ASCORBIC ACID [Concomitant]
  10. VITAMIN E [Concomitant]
  11. CENTRUM SILVER [Concomitant]

REACTIONS (2)
  - FEAR [None]
  - FEELING ABNORMAL [None]
